FAERS Safety Report 7578266-9 (Version None)
Quarter: 2011Q2

REPORT INFORMATION
  Report Type: 
  Country: None (occurrence: None)
  Receive Date: 20110628
  Receipt Date: 20110614
  Transmission Date: 20111010
  Serious: Yes (Other)
  Sender: FDA-Public Use
  Company Number: CA-JNJFOC-20110607528

PATIENT
  Sex: Male
  Weight: 64.5 kg

DRUGS (1)
  1. REMICADE [Suspect]
     Indication: CROHN'S DISEASE
     Route: 042

REACTIONS (6)
  - RESTLESSNESS [None]
  - ARTHRALGIA [None]
  - TREMOR [None]
  - BACK PAIN [None]
  - CYANOSIS [None]
  - INFUSION RELATED REACTION [None]
